FAERS Safety Report 9495020 (Version 1)
Quarter: 2013Q3

REPORT INFORMATION
  Report Type: Spontaneous
  Country: US (occurrence: None)
  Receive Date: 20130828
  Receipt Date: 20130828
  Transmission Date: 20140515
  Serious: Yes (Other)
  Sender: FDA-Public Use
  Company Number: JPI-P-034687

PATIENT
  Age: 42 Year
  Sex: Female

DRUGS (6)
  1. XYREM [Suspect]
     Indication: HYPERSOMNIA
     Dosage: 4GM (2GM, 2 IN 1 D) ORAL
     Route: 048
     Dates: start: 201104
  2. ALBUTEROL SULFATE [Concomitant]
  3. BUDESONIDE/FORMOTEROL FUMARATE DIHYDRATE [Concomitant]
  4. BUPROPION HYDROCHLORIDE [Concomitant]
  5. FLUOXETINE HYDROCHLORIDE [Concomitant]
  6. LANSOPRAZOLE [Concomitant]

REACTIONS (1)
  - Appendicectomy [None]
